FAERS Safety Report 11991620 (Version 1)
Quarter: 2016Q1

REPORT INFORMATION
  Report Type: Spontaneous
  Country: US (occurrence: US)
  Receive Date: 20160203
  Receipt Date: 20160203
  Transmission Date: 20160526
  Serious: No
  Sender: FDA-Public Use
  Company Number: US-JNJFOC-20151206431

PATIENT
  Sex: Female

DRUGS (2)
  1. PEPCID AC [Suspect]
     Active Substance: FAMOTIDINE
     Indication: ABDOMINAL DISTENSION
     Route: 065
  2. PEPCID AC [Suspect]
     Active Substance: FAMOTIDINE
     Route: 065

REACTIONS (1)
  - Drug ineffective [Unknown]
